FAERS Safety Report 5341694-6 (Version None)
Quarter: 2007Q2

REPORT INFORMATION
  Report Type: 
  Country: None (occurrence: None)
  Receive Date: 20070530
  Receipt Date: 20070517
  Transmission Date: 20071010
  Serious: Yes (Hospitalization)
  Sender: FDA-Public Use
  Company Number: 2007-01592

PATIENT
  Age: 45 Year
  Sex: Female
  Weight: 48 kg

DRUGS (1)
  1. VELCADE [Suspect]
     Indication: MULTIPLE MYELOMA
     Dosage: 2.00 MG, UNK, INTRAVENOUS
     Route: 042

REACTIONS (2)
  - BARRETT'S OESOPHAGUS [None]
  - OESOPHAGEAL ULCER [None]
